FAERS Safety Report 14795561 (Version 1)
Quarter: 2018Q2

REPORT INFORMATION
  Report Type: Report from Study
  Country: JP (occurrence: JP)
  Receive Date: 20180423
  Receipt Date: 20180423
  Transmission Date: 20180711
  Serious: Yes (Hospitalization, Other)
  Sender: FDA-Public Use
  Company Number: JP-AMGEN-JPNCT2014088309

PATIENT
  Age: 4 Year
  Sex: Male
  Weight: 15 kg

DRUGS (5)
  1. IMUNACE [Concomitant]
     Active Substance: TECELEUKIN
     Dosage: 63 IU, QD
     Route: 042
     Dates: start: 20140801, end: 20141024
  2. BAKTAR [Concomitant]
     Active Substance: SULFAMETHOXAZOLE\TRIMETHOPRIM
     Indication: ANTIFUNGAL PROPHYLAXIS
     Dosage: 1.5 G, BID
     Route: 048
     Dates: start: 20140725
  3. FILGRASTIM [Suspect]
     Active Substance: FILGRASTIM
     Indication: NEUROBLASTOMA
     Dosage: 75 MUG, UNK
     Route: 065
     Dates: start: 20140801, end: 20141024
  4. MIRIMOSTIM [Concomitant]
     Active Substance: MIRIMOSTIM
     Indication: ANTIFUNGAL PROPHYLAXIS
     Dosage: 11 MG, UNK
     Route: 065
     Dates: start: 20140801, end: 20141024
  5. IMUNACE [Concomitant]
     Active Substance: TECELEUKIN
     Indication: NEUROBLASTOMA
     Dosage: 47 IU, UNK
     Route: 065

REACTIONS (25)
  - Urinary retention [Recovered/Resolved]
  - Dermatitis exfoliative generalised [Recovered/Resolved]
  - Alanine aminotransferase increased [Recovered/Resolved]
  - Hypoalbuminaemia [Recovered/Resolved]
  - Malaise [Recovered/Resolved]
  - Anaemia [Not Recovered/Not Resolved]
  - Hypertension [Recovered/Resolved]
  - Weight decreased [Recovered/Resolved]
  - White blood cell count decreased [Recovered/Resolved]
  - Pain [Recovered/Resolved]
  - Hypokalaemia [Recovered/Resolved]
  - Neutrophil count decreased [Recovered/Resolved]
  - Hypertension [Recovered/Resolved]
  - Anaemia [Recovered/Resolved]
  - Decreased appetite [Recovered/Resolved]
  - Gamma-glutamyltransferase increased [Not Recovered/Not Resolved]
  - Device related infection [Recovered/Resolved]
  - Face oedema [Recovered/Resolved]
  - Constipation [Recovered/Resolved]
  - Decreased appetite [Recovered/Resolved]
  - Weight decreased [Recovered/Resolved]
  - Hypokalaemia [Recovered/Resolved]
  - Alanine aminotransferase increased [Recovered/Resolved]
  - Aspartate aminotransferase increased [Recovered/Resolved]
  - Pyrexia [Recovered/Resolved]

NARRATIVE: CASE EVENT DATE: 20140804
